FAERS Safety Report 7651333-7 (Version None)
Quarter: 2011Q3

REPORT INFORMATION
  Report Type: 
  Country: None (occurrence: None)
  Receive Date: 20110802
  Receipt Date: 20110719
  Transmission Date: 20111222
  Serious: Yes (Hospitalization, Other)
  Sender: FDA-Public Use
  Company Number: PHFR2011GB04329

PATIENT
  Sex: Female

DRUGS (9)
  1. CLOZAPINE [Suspect]
     Indication: SCHIZOPHRENIA
     Route: 048
     Dates: start: 20090907
  2. LITHIUM CARBONATE [Concomitant]
  3. OLANZAPINE [Concomitant]
     Indication: PSYCHIATRIC SYMPTOM
     Dosage: 20 MG, UNK
  4. CLOZAPINE [Suspect]
     Dosage: 300 MG, UNK
     Route: 048
     Dates: end: 20090101
  5. QUETIAPINE [Concomitant]
  6. AMISULPRIDE [Suspect]
  7. VALPROATE SODIUM [Concomitant]
     Indication: MOOD ALTERED
  8. ARIPIPRAZOLE [Concomitant]
  9. LAMOTRIGINE [Concomitant]

REACTIONS (10)
  - PSYCHIATRIC SYMPTOM [None]
  - SINUS TACHYCARDIA [None]
  - CHEST PAIN [None]
  - EXERCISE TOLERANCE DECREASED [None]
  - HEART RATE INCREASED [None]
  - CARDIOMYOPATHY [None]
  - HALLUCINATION [None]
  - HYPERKINETIC HEART SYNDROME [None]
  - EJECTION FRACTION ABNORMAL [None]
  - DILATATION VENTRICULAR [None]
